FAERS Safety Report 21682947 (Version 1)
Quarter: 2022Q4

REPORT INFORMATION
  Report Type: Report from Study
  Country: US (occurrence: US)
  Receive Date: 20221205
  Receipt Date: 20221205
  Transmission Date: 20230113
  Serious: Yes (Hospitalization)
  Sender: FDA-Public Use
  Company Number: US-GILEAD-2022-0607337

PATIENT
  Sex: Male

DRUGS (1)
  1. AZTREONAM LYSINE [Suspect]
     Active Substance: AZTREONAM LYSINE
     Indication: Illness
     Dosage: INHALE 75 MG VIA ALTERA NEBULIZER THREE TIMES DAILY. 1 MONTH ON AND 1 MONTH OFF, ALTERNATE WITH TOBR
     Route: 055

REACTIONS (1)
  - Infection [Unknown]
